FAERS Safety Report 23094292 (Version 1)
Quarter: 2023Q4

REPORT INFORMATION
  Report Type: Spontaneous
  Country: US (occurrence: US)
  Receive Date: 20231023
  Receipt Date: 20231023
  Transmission Date: 20240110
  Serious: Yes (Other)
  Sender: FDA-Public Use
  Company Number: US-BIOGEN-2023BI01231912

PATIENT
  Sex: Female

DRUGS (1)
  1. TYSABRI [Suspect]
     Active Substance: NATALIZUMAB
     Indication: Multiple sclerosis
     Route: 050
     Dates: start: 20200319

REACTIONS (6)
  - Cerebrovascular accident [Unknown]
  - Sleep disorder [Unknown]
  - Central nervous system lesion [Unknown]
  - Stress [Unknown]
  - Mental disorder [Unknown]
  - Malaise [Unknown]
